FAERS Safety Report 7385579-2 (Version None)
Quarter: 2011Q1

REPORT INFORMATION
  Report Type: 
  Country: None (occurrence: None)
  Receive Date: 20110331
  Receipt Date: 20110321
  Transmission Date: 20110831
  Serious: No
  Sender: FDA-Public Use
  Company Number: US-BIOGENIDEC-2011BI006961

PATIENT
  Age: 36 Year
  Sex: Female

DRUGS (3)
  1. TYSABRI [Suspect]
     Indication: MULTIPLE SCLEROSIS
     Route: 042
     Dates: start: 20100615
  2. ZYRTEC [Concomitant]
     Indication: PREMEDICATION
  3. STEROIDS [Concomitant]
     Indication: PREMEDICATION

REACTIONS (8)
  - FRACTURED COCCYX [None]
  - INFUSION RELATED REACTION [None]
  - UPPER LIMB FRACTURE [None]
  - FALL [None]
  - PAIN [None]
  - MALAISE [None]
  - FATIGUE [None]
  - HEADACHE [None]
